FAERS Safety Report 13756600 (Version 2)
Quarter: 2017Q3

REPORT INFORMATION
  Report Type: Spontaneous
  Country: CH (occurrence: CH)
  Receive Date: 20170714
  Receipt Date: 20170721
  Transmission Date: 20171127
  Serious: Yes (Hospitalization)
  Sender: FDA-Public Use
  Company Number: CH-PFIZER INC-2017301809

PATIENT
  Age: 87 Year
  Sex: Female

DRUGS (8)
  1. COVERSUM N COMBI [Concomitant]
     Dosage: 0.5 DF, 1X/DAY
     Route: 048
  2. PANTOZOL [Concomitant]
     Active Substance: PANTOPRAZOLE SODIUM
     Dosage: 20 MG, 1X/DAY
     Route: 048
  3. DISTRANEURIN /00027501/ [Interacting]
     Active Substance: CLOMETHIAZOLE
     Dosage: 192 MG, 1X/DAY
     Route: 048
     Dates: start: 201705, end: 201706
  4. TEMESTA [Suspect]
     Active Substance: LORAZEPAM
     Dosage: 1 MG, IN RESERVE
     Route: 048
     Dates: start: 201705, end: 201706
  5. SEQUASE [Interacting]
     Active Substance: QUETIAPINE FUMARATE
     Dosage: 275 MG, DAILY ((DOSAGE 2-3-2-4)
     Route: 048
     Dates: start: 201705, end: 201706
  6. ELIQUIS [Concomitant]
     Active Substance: APIXABAN
     Dosage: 2.5 MG, 2X/DAY
     Route: 048
  7. ATORVASTATIN PFIZER [Concomitant]
     Active Substance: ATORVASTATIN
     Dosage: 20 MG, 1X/DAY
     Route: 048
  8. SOTALOL MEPHA [Concomitant]
     Active Substance: SOTALOL HYDROCHLORIDE
     Dosage: 80 MG, 2X/DAY
     Route: 048

REACTIONS (4)
  - Drug interaction [Unknown]
  - Somnolence [Recovered/Resolved]
  - Fall [Recovered/Resolved]
  - Craniocerebral injury [Recovered/Resolved]

NARRATIVE: CASE EVENT DATE: 20170610
